FAERS Safety Report 17261576 (Version 1)
Quarter: 2020Q1

REPORT INFORMATION
  Report Type: Spontaneous
  Country: FR (occurrence: FR)
  Receive Date: 20200113
  Receipt Date: 20200113
  Transmission Date: 20200409
  Serious: Yes (Hospitalization)
  Sender: FDA-Public Use
  Company Number: FR-TEVA-2020-FR-1166914

PATIENT
  Age: 44 Year
  Sex: Female

DRUGS (3)
  1. PREGABALINE [Suspect]
     Active Substance: PREGABALIN
     Indication: PRODUCT ADMINISTRATION ERROR
     Dosage: 300 MG PER TOTAL
     Route: 048
     Dates: start: 20191129, end: 20191129
  2. IXPRIM [Interacting]
     Active Substance: ACETAMINOPHEN\TRAMADOL HYDROCHLORIDE
     Indication: PAIN
     Dosage: 1 DOSAGE FORM PER TOTAL
     Route: 048
     Dates: start: 20191129, end: 20191129
  3. GABAPENTINE [Concomitant]
     Active Substance: GABAPENTIN
     Indication: MYALGIA
     Route: 048

REACTIONS (8)
  - Depressed level of consciousness [Recovered/Resolved]
  - Drug interaction [Unknown]
  - Dyskinesia [Recovered/Resolved]
  - Product dispensing error [Recovered/Resolved]
  - Somnolence [Recovered/Resolved]
  - Vomiting [Recovered/Resolved]
  - Confusional state [Recovered/Resolved]
  - Dysarthria [Not Recovered/Not Resolved]

NARRATIVE: CASE EVENT DATE: 20191129
